FAERS Safety Report 5481202-2 (Version None)
Quarter: 2007Q4

REPORT INFORMATION
  Report Type: 
  Country: None (occurrence: None)
  Receive Date: 20071010
  Receipt Date: 20071002
  Transmission Date: 20080405
  Serious: Yes (Other)
  Sender: FDA-Public Use
  Company Number: PHNU2007DE03165

PATIENT
  Age: 53 Year
  Sex: Male

DRUGS (3)
  1. DIOVAN [Suspect]
     Indication: HYPERTENSION
     Dosage: 1-0-0 TABLET/DAY
     Route: 048
     Dates: start: 20030101
  2. NORVASC [Concomitant]
     Dosage: 1 DF, QD
     Dates: start: 20030101
  3. INSULIN [Concomitant]

REACTIONS (5)
  - BACTERIAL INFECTION [None]
  - DYSPNOEA [None]
  - HYPOTHYROIDISM [None]
  - OEDEMA PERIPHERAL [None]
  - SWELLING FACE [None]
